FAERS Safety Report 18764263 (Version 2)
Quarter: 2022Q2

REPORT INFORMATION
  Report Type: Spontaneous
  Country: US (occurrence: US)
  Receive Date: 20210120
  Receipt Date: 20220412
  Transmission Date: 20220720
  Serious: Yes (Other)
  Sender: FDA-Public Use
  Company Number: US-GLAXOSMITHKLINE-US2021GSK012019

PATIENT
  Sex: Male

DRUGS (4)
  1. RANITIDINE [Suspect]
     Active Substance: RANITIDINE
     Indication: Dyspepsia
     Dosage: UNKNOWN AT THIS TIME PRESCRIPTION
     Route: 065
     Dates: start: 201001, end: 202001
  2. RANITIDINE [Suspect]
     Active Substance: RANITIDINE
     Indication: Hyperchlorhydria
     Dosage: UNKNOWN AT THIS TIME PRESCRIPTION
     Route: 065
     Dates: start: 201001, end: 202001
  3. RANITIDINE [Suspect]
     Active Substance: RANITIDINE
     Indication: Dyspepsia
     Dosage: UNKNOWN AT THIS TIME PRESCRIPTION
     Route: 065
     Dates: start: 201001, end: 202001
  4. RANITIDINE [Suspect]
     Active Substance: RANITIDINE
     Indication: Hyperchlorhydria
     Dosage: UNKNOWN AT THIS TIME PRESCRIPTION
     Route: 065
     Dates: start: 201001, end: 202001

REACTIONS (2)
  - Bladder cancer [Unknown]
  - Prostate cancer [Unknown]
